FAERS Safety Report 20376492 (Version 2)
Quarter: 2022Q1

REPORT INFORMATION
  Report Type: Report from Study
  Country: US (occurrence: US)
  Receive Date: 20220125
  Receipt Date: 20220128
  Transmission Date: 20220423
  Serious: Yes (Other)
  Sender: FDA-Public Use
  Company Number: US-UCBSA-2022002262

PATIENT
  Age: 58 Year
  Sex: Female

DRUGS (7)
  1. LACOSAMIDE [Suspect]
     Active Substance: LACOSAMIDE
     Indication: Seizure
     Dosage: 100 MILLIGRAM, 2X/DAY (BID)
     Route: 048
  2. LACOSAMIDE [Suspect]
     Active Substance: LACOSAMIDE
     Dosage: 150 MILLIGRAM, 2X/DAY (BID)
     Route: 048
  3. KEPPRA [Suspect]
     Active Substance: LEVETIRACETAM
     Indication: Seizure
     Dosage: 1000 MILLIGRAM, 2X/DAY (BID)
     Route: 048
  4. DIAZEPAM [Concomitant]
     Active Substance: DIAZEPAM
     Indication: Seizure
  5. LORAZEPAM [Concomitant]
     Active Substance: LORAZEPAM
     Indication: Seizure
  6. ZONISAMIDE [Concomitant]
     Active Substance: ZONISAMIDE
     Indication: Seizure
  7. TRILEPTAL [Concomitant]
     Active Substance: OXCARBAZEPINE
     Indication: Seizure

REACTIONS (10)
  - Partial seizures [Recovering/Resolving]
  - Generalised tonic-clonic seizure [Unknown]
  - Head injury [Unknown]
  - Subdural haematoma [Unknown]
  - Seizure [Not Recovered/Not Resolved]
  - Amnesia [Unknown]
  - Fall [Unknown]
  - Hyponatraemia [Unknown]
  - Pyrexia [Unknown]
  - Musculoskeletal stiffness [Not Recovered/Not Resolved]

NARRATIVE: CASE EVENT DATE: 20201026
